FAERS Safety Report 8034246-0 (Version None)
Quarter: 2012Q1

REPORT INFORMATION
  Report Type: 
  Country: None (occurrence: None)
  Receive Date: 20120110
  Receipt Date: 20120104
  Transmission Date: 20120608
  Serious: Yes (Other)
  Sender: FDA-Public Use
  Company Number: CA-ROCHE-GNE314039

PATIENT
  Sex: Female
  Weight: 99.106 kg

DRUGS (3)
  1. XOLAIR [Suspect]
     Dosage: 300 MG, 1/MONTH
     Route: 058
     Dates: start: 20091229
  2. XOLAIR [Suspect]
     Indication: ASTHMA
     Dosage: 300 MG, Q2W
     Route: 058
     Dates: start: 20080117
  3. XOLAIR [Suspect]
     Dosage: 300 MG, Q2W
     Route: 058
     Dates: start: 20091202

REACTIONS (7)
  - APHONIA [None]
  - DYSPNOEA [None]
  - NASOPHARYNGITIS [None]
  - SERUM FERRITIN DECREASED [None]
  - FATIGUE [None]
  - PULMONARY FIBROSIS [None]
  - BLOOD IRON DECREASED [None]
